FAERS Safety Report 5393724-3 (Version None)
Quarter: 2007Q3

REPORT INFORMATION
  Report Type: 
  Country: None (occurrence: None)
  Receive Date: 20070719
  Receipt Date: 20070719
  Transmission Date: 20080115
  Serious: Yes (Hospitalization)
  Sender: FDA-Public Use
  Company Number: None

PATIENT
  Age: 85 Year
  Sex: Male

DRUGS (3)
  1. NIFEDIPINE [Suspect]
     Indication: GLAUCOMA
     Dosage: 90MG EVERY DAY PO
     Route: 048
     Dates: start: 20050929, end: 20070709
  2. NIFEDIPINE [Suspect]
     Indication: HYPERTENSION
     Dosage: 90MG EVERY DAY PO
     Route: 048
     Dates: start: 20050929, end: 20070709
  3. DORZOLAMIDE HCL AND TIMOLOL MALEATE [Suspect]
     Dosage: 1DROPS BID EYE
     Dates: start: 20040223

REACTIONS (1)
  - BRADYCARDIA [None]
